FAERS Safety Report 25842103 (Version 1)
Quarter: 2025Q3

REPORT INFORMATION
  Report Type: Spontaneous
  Country: US (occurrence: None)
  Receive Date: 20250924
  Receipt Date: 20250924
  Transmission Date: 20251021
  Serious: Yes (Disabling, Other)
  Sender: FDA-CTU
  Company Number: None

PATIENT
  Age: 63 Year
  Sex: Male
  Weight: 73.35 kg

DRUGS (6)
  1. OPDIVO [Suspect]
     Active Substance: NIVOLUMAB
     Indication: Malignant melanoma
  2. TAMSULOSIN [Concomitant]
     Active Substance: TAMSULOSIN
  3. VITAMIN B [Concomitant]
     Active Substance: VITAMIN B
  4. VITAMIN D [Concomitant]
     Active Substance: VITAMIN D NOS
  5. VITAMINS [Concomitant]
     Active Substance: VITAMINS
  6. protein shakes [Concomitant]

REACTIONS (16)
  - Weight decreased [None]
  - Constipation [None]
  - Gastrointestinal disorder [None]
  - Diarrhoea [None]
  - Abdominal pain [None]
  - Cholecystectomy [None]
  - Vomiting [None]
  - Amblyopia [None]
  - Hypothyroidism [None]
  - Sinus disorder [None]
  - Cough [None]
  - Muscle spasms [None]
  - Pain in extremity [None]
  - Asthenia [None]
  - Amnesia [None]
  - Fatigue [None]

NARRATIVE: CASE EVENT DATE: 20240902
